FAERS Safety Report 24586277 (Version 7)
Quarter: 2025Q1

REPORT INFORMATION
  Report Type: Spontaneous
  Country: CN (occurrence: CN)
  Receive Date: 20241106
  Receipt Date: 20250117
  Transmission Date: 20250409
  Serious: Yes (Hospitalization)
  Sender: ELI LILLY AND COMPANY
  Company Number: CN-ELI_LILLY_AND_COMPANY-CN202410020839

PATIENT
  Age: 61 Year
  Sex: Male
  Weight: 80 kg

DRUGS (3)
  1. HUMALOG MIX75/25 [Suspect]
     Active Substance: INSULIN LISPRO
     Indication: Diabetes mellitus
     Dosage: 18 U, BID
     Route: 058
     Dates: start: 202406, end: 20241028
  2. HUMALOG MIX75/25 [Suspect]
     Active Substance: INSULIN LISPRO
     Dosage: 18 U, BID
     Route: 058
     Dates: start: 202407
  3. ACARBOSE [Concomitant]
     Active Substance: ACARBOSE
     Indication: Blood glucose abnormal

REACTIONS (26)
  - Altered state of consciousness [Recovered/Resolved with Sequelae]
  - Unresponsive to stimuli [Recovered/Resolved with Sequelae]
  - Drug hypersensitivity [Recovered/Resolved with Sequelae]
  - Erythema [Recovered/Resolved with Sequelae]
  - Pruritus [Recovered/Resolved with Sequelae]
  - Anaphylactic shock [Unknown]
  - Discomfort [Recovering/Resolving]
  - Seizure [Recovering/Resolving]
  - Abscess [Unknown]
  - Oropharyngeal discomfort [Recovered/Resolved with Sequelae]
  - Muscle twitching [Recovered/Resolved with Sequelae]
  - Weight decreased [Recovered/Resolved with Sequelae]
  - Depressed mood [Recovered/Resolved with Sequelae]
  - Memory impairment [Not Recovered/Not Resolved]
  - Speech disorder [Unknown]
  - Slow response to stimuli [Recovering/Resolving]
  - Thinking abnormal [Unknown]
  - Blood pressure diastolic decreased [Unknown]
  - Hyperhidrosis [Recovered/Resolved with Sequelae]
  - Hypotension [Recovered/Resolved with Sequelae]
  - Injection site mass [Recovering/Resolving]
  - Injection site pruritus [Recovered/Resolved with Sequelae]
  - Injection site erythema [Recovered/Resolved with Sequelae]
  - Injection site induration [Recovered/Resolved with Sequelae]
  - Rash erythematous [Not Recovered/Not Resolved]
  - Sluggishness [Recovering/Resolving]

NARRATIVE: CASE EVENT DATE: 20241028
